FAERS Safety Report 15057936 (Version 6)
Quarter: 2019Q1

REPORT INFORMATION
  Report Type: Spontaneous
  Country: CA (occurrence: CA)
  Receive Date: 20180625
  Receipt Date: 20190224
  Transmission Date: 20190417
  Serious: Yes (Other)
  Sender: FDA-Public Use
  Company Number: CA-CELLTRION INC.-2018CA020697

PATIENT

DRUGS (8)
  1. ASACOL [Concomitant]
     Active Substance: MESALAMINE
     Dosage: 800 MG
  2. CORTISONE [Concomitant]
     Active Substance: CORTISONE\HYDROCORTISONE
     Dosage: UNK
  3. INFLECTRA [Suspect]
     Active Substance: INFLIXIMAB-DYYB
     Indication: CROHN^S DISEASE
     Dosage: 5 MG/KG, CYCLIC (0, 2, 6, WEEKS, THEN EVERY 8 WEEKS)
     Route: 042
     Dates: start: 20180607
  4. INFLECTRA [Suspect]
     Active Substance: INFLIXIMAB-DYYB
     Dosage: 5 MG/KG, CYCLIC (0, 2, 6, WEEKS, THEN EVERY 8 WEEKS)
     Route: 042
     Dates: start: 20180719
  5. INFLECTRA [Suspect]
     Active Substance: INFLIXIMAB-DYYB
     Dosage: 5 MG/KG, CYCLIC (0, 2, 6, WEEKS, THEN EVERY 8 WEEKS)
     Route: 042
     Dates: start: 20180913, end: 20181105
  6. INFLECTRA [Suspect]
     Active Substance: INFLIXIMAB-DYYB
     Dosage: 5 MG/KG, CYCLIC (0, 2, 6, WEEKS, THEN EVERY 8 WEEKS)
     Route: 042
     Dates: start: 20180621
  7. INFLECTRA [Suspect]
     Active Substance: INFLIXIMAB-DYYB
     Dosage: 5 MG/KG, CYCLIC (0, 2, 6, WEEKS, THEN EVERY 8 WEEKS)
     Route: 042
     Dates: start: 20180621
  8. INFLECTRA [Suspect]
     Active Substance: INFLIXIMAB-DYYB
     Dosage: 5 MG/KG, CYCLIC (0, 2, 6, WEEKS, THEN EVERY 8 WEEKS)
     Route: 042
     Dates: start: 20181105

REACTIONS (12)
  - Tinnitus [Unknown]
  - Chest pain [Unknown]
  - Vomiting [Recovered/Resolved]
  - Psoriasis [Unknown]
  - Dizziness [Recovered/Resolved]
  - Headache [Recovered/Resolved]
  - Condition aggravated [Not Recovered/Not Resolved]
  - Pancreatitis [Not Recovered/Not Resolved]
  - Arthralgia [Not Recovered/Not Resolved]
  - Skin lesion [Unknown]
  - Incorrect dose administered [Not Recovered/Not Resolved]
  - Hepatic enzyme abnormal [Recovered/Resolved]

NARRATIVE: CASE EVENT DATE: 201806
